FAERS Safety Report 25729288 (Version 1)
Quarter: 2025Q3

REPORT INFORMATION
  Report Type: Spontaneous
  Country: JP (occurrence: JP)
  Receive Date: 20250827
  Receipt Date: 20250827
  Transmission Date: 20251020
  Serious: Yes (Other)
  Sender: ALK-ABELLO
  Company Number: JP-ALK-ABELLO A/S-2025AA002894

PATIENT

DRUGS (4)
  1. DERMATOPHAGOIDES FARINAE\DERMATOPHAGOIDES PTERONYSSINUS [Suspect]
     Active Substance: DERMATOPHAGOIDES FARINAE\DERMATOPHAGOIDES PTERONYSSINUS
     Indication: Mite allergy
     Route: 058
     Dates: start: 20240905
  2. ALLERGENIC EXTRACTS [Suspect]
     Active Substance: ALLERGENIC EXTRACTS
     Indication: Immune tolerance induction
     Dates: start: 1981, end: 202406
  3. POLARAMINE [Concomitant]
     Active Substance: DEXCHLORPHENIRAMINE MALEATE
     Indication: Urticaria
     Route: 048
  4. PREDONINE [Concomitant]
     Active Substance: PREDNISOLONE
     Indication: Urticaria
     Route: 048

REACTIONS (14)
  - Suicidal ideation [Unknown]
  - Swelling [Unknown]
  - Dyspnoea [Not Recovered/Not Resolved]
  - Nasopharyngitis [Not Recovered/Not Resolved]
  - Administration site swelling [Unknown]
  - Nasopharyngitis [Unknown]
  - Malaise [Unknown]
  - Urticaria [Recovered/Resolved]
  - Physical deconditioning [Unknown]
  - Mental disorder [Unknown]
  - Feeling abnormal [Unknown]
  - Hypersensitivity [Unknown]
  - Maternal exposure during pregnancy [Recovered/Resolved]
  - Adverse reaction [Unknown]

NARRATIVE: CASE EVENT DATE: 20240101
